FAERS Safety Report 20230837 (Version 1)
Quarter: 2021Q4

REPORT INFORMATION
  Report Type: Spontaneous
  Country: FR (occurrence: FR)
  Receive Date: 20211227
  Receipt Date: 20211227
  Transmission Date: 20220303
  Serious: Yes (Death, Other)
  Sender: FDA-Public Use
  Company Number: FR-AFSSAPS-PP20211734

PATIENT
  Age: 78 Year
  Sex: Male
  Weight: 83 kg

DRUGS (3)
  1. BISOPROLOL [Interacting]
     Active Substance: BISOPROLOL
     Indication: Hypertension
     Dosage: 2.5 MILLIGRAM, ONCE A DAY
     Route: 048
     Dates: end: 20211129
  2. ATROPINE SULFATE [Suspect]
     Active Substance: ATROPINE SULFATE
     Indication: Intestinal pseudo-obstruction
     Dosage: 0.5 MILLIGRAM
     Route: 042
     Dates: start: 20211129, end: 20211129
  3. NEOSTIGMINE BROMIDE [Suspect]
     Active Substance: NEOSTIGMINE BROMIDE
     Indication: Intestinal pseudo-obstruction
     Dosage: 2 MILLIGRAM
     Route: 042
     Dates: start: 20211129, end: 20211129

REACTIONS (2)
  - Cardio-respiratory arrest [Fatal]
  - Pulseless electrical activity [Fatal]

NARRATIVE: CASE EVENT DATE: 20211129
